FAERS Safety Report 8530069-4 (Version None)
Quarter: 2012Q3

REPORT INFORMATION
  Report Type: 
  Country: None (occurrence: None)
  Receive Date: 20120723
  Receipt Date: 20120718
  Transmission Date: 20120928
  Serious: Yes (Hospitalization)
  Sender: FDA-Public Use
  Company Number: PHEH2012US014161

PATIENT
  Age: 89 Year
  Sex: Female

DRUGS (1)
  1. EXELON [Suspect]
     Dosage: UNK UKN, UNK
     Route: 062

REACTIONS (2)
  - URINARY TRACT INFECTION [None]
  - ABNORMAL BEHAVIOUR [None]
